FAERS Safety Report 4495928-0 (Version None)
Quarter: 2004Q3

REPORT INFORMATION
  Report Type: 
  Country: None (occurrence: None)
  Receive Date: 20040927
  Receipt Date: 20040524
  Transmission Date: 20050211
  Serious: No
  Sender: FDA-Public Use
  Company Number: USA040568384

PATIENT
  Age: 13 Year
  Sex: Male
  Weight: 123 kg

DRUGS (1)
  1. STRATTERA [Suspect]
     Indication: ATTENTION DEFICIT/HYPERACTIVITY DISORDER
     Dosage: 60 MG DAY
     Dates: start: 20040503

REACTIONS (3)
  - PHARYNGITIS [None]
  - STOMACH DISCOMFORT [None]
  - VOMITING [None]
